FAERS Safety Report 7908058-X (Version None)
Quarter: 2011Q4

REPORT INFORMATION
  Report Type: 
  Country: None (occurrence: None)
  Receive Date: 20111111
  Receipt Date: 20111108
  Transmission Date: 20120403
  Serious: Yes (Hospitalization)
  Sender: FDA-Public Use
  Company Number: GB-BRISTOL-MYERS SQUIBB COMPANY-16065583

PATIENT
  Age: 70 Year
  Sex: Female

DRUGS (5)
  1. BENDROFLUMETHIAZIDE [Concomitant]
  2. CLOPIDOGREL BISULFATE [Concomitant]
  3. IPILIMUMAB [Suspect]
     Indication: MALIGNANT MELANOMA
     Dosage: Q21/7.2ND DOSE: 15AUG11.
     Route: 042
     Dates: start: 20110720
  4. ATENOLOL [Concomitant]
  5. ATORVASTATIN [Concomitant]

REACTIONS (4)
  - FATIGUE [None]
  - ILEITIS [None]
  - WEIGHT DECREASED [None]
  - ORAL CANDIDIASIS [None]
